FAERS Safety Report 4553873-6 (Version None)
Quarter: 2005Q1

REPORT INFORMATION
  Report Type: 
  Country: None (occurrence: None)
  Receive Date: 20050113
  Receipt Date: 20050113
  Transmission Date: 20050727
  Serious: Yes (Hospitalization)
  Sender: FDA-Public Use
  Company Number: None

PATIENT
  Age: 88 Year
  Sex: Female
  Weight: 47.6277 kg

DRUGS (6)
  1. NAMENDA [Suspect]
     Dosage: 1 PO QD
     Route: 048
  2. ZYRTEC [Concomitant]
  3. DIGOXIN [Concomitant]
  4. CAPTOPRIL [Concomitant]
  5. ARICEPT [Concomitant]
  6. SEROQUEL [Concomitant]

REACTIONS (4)
  - CONFUSIONAL STATE [None]
  - DIFFICULTY IN WALKING [None]
  - SYNCOPE [None]
  - URINARY TRACT INFECTION [None]
